FAERS Safety Report 7240571-3 (Version None)
Quarter: 2011Q1

REPORT INFORMATION
  Report Type: 
  Country: None (occurrence: None)
  Receive Date: 20110124
  Receipt Date: 20110117
  Transmission Date: 20110831
  Serious: Yes (Death, Other)
  Sender: FDA-Public Use
  Company Number: US-CELGENEUS-163-21880-11011780

PATIENT
  Age: 68 Year

DRUGS (6)
  1. DEXAMETHASONE [Suspect]
     Indication: MULTIPLE MYELOMA
     Route: 065
  2. CC-5013 [Suspect]
     Indication: MULTIPLE MYELOMA
     Route: 048
  3. BORTEZOMIB [Suspect]
     Indication: MULTIPLE MYELOMA
     Route: 065
  4. THALOMID [Suspect]
     Indication: MULTIPLE MYELOMA
     Route: 048
  5. MELPHALAN [Suspect]
     Indication: MULTIPLE MYELOMA
     Route: 065
  6. PLACEBO FOR CC-5013 [Suspect]
     Indication: MULTIPLE MYELOMA
     Route: 048

REACTIONS (2)
  - SQUAMOUS CELL CARCINOMA [None]
  - DEATH [None]
